FAERS Safety Report 19911669 (Version 1)
Quarter: 2021Q4

REPORT INFORMATION
  Report Type: Spontaneous
  Country: US (occurrence: US)
  Receive Date: 20211002
  Receipt Date: 20211002
  Transmission Date: 20220303
  Serious: Yes (unspecified)
  Sender: FDA-Public Use
  Company Number: None

PATIENT
  Age: 57 Year
  Sex: Male
  Weight: 112.5 kg

DRUGS (1)
  1. LOTRIMIN AF ANTIFUNGAL [Suspect]
     Active Substance: MICONAZOLE NITRATE
     Indication: Tinea pedis
     Route: 061
     Dates: start: 20210909, end: 20210916

REACTIONS (5)
  - Localised infection [None]
  - Localised infection [None]
  - Recalled product administered [None]
  - Gait inability [None]
  - Product contamination microbial [None]

NARRATIVE: CASE EVENT DATE: 20210908
